FAERS Safety Report 10082874 (Version 1)
Quarter: 2014Q2

REPORT INFORMATION
  Report Type: Spontaneous
  Country: US (occurrence: US)
  Receive Date: 20140416
  Receipt Date: 20140416
  Transmission Date: 20141212
  Serious: Yes (Death)
  Sender: FDA-Public Use
  Company Number: US-ROCHE-1385394

PATIENT
  Age: 83 Year
  Sex: Female

DRUGS (2)
  1. XELODA [Suspect]
     Indication: BREAST CANCER
     Route: 048
     Dates: start: 20140131
  2. XELODA [Suspect]
     Indication: METASTASES TO LIVER

REACTIONS (1)
  - Death [Fatal]
